FAERS Safety Report 6705298-2 (Version None)
Quarter: 2010Q2

REPORT INFORMATION
  Report Type: 
  Country: None (occurrence: None)
  Receive Date: 20100430
  Receipt Date: 20100420
  Transmission Date: 20101027
  Serious: Yes (Hospitalization, Other)
  Sender: FDA-Public Use
  Company Number: US-ROCHE-660796

PATIENT
  Sex: Male

DRUGS (2)
  1. PEGINTERFERON ALFA-2A [Suspect]
     Indication: HEPATITIS C
     Dosage: FORM: PRE-FILLED SYRINGE (PFS); THE PATIENT WAS IN WEEK 33 OF TREATMENT.
     Route: 065
     Dates: start: 20090903
  2. RIBASPHERE [Suspect]
     Indication: HEPATITIS C
     Dosage: THE PATIENT WAS IN WEEK 33 OF TREATMENT.
     Route: 065
     Dates: start: 20090903

REACTIONS (20)
  - ABNORMAL DREAMS [None]
  - ANGER [None]
  - DECREASED APPETITE [None]
  - DEPRESSION [None]
  - DIARRHOEA [None]
  - DRY SKIN [None]
  - EAR INFECTION [None]
  - EYE INFECTION [None]
  - FATIGUE [None]
  - IMMUNE SYSTEM DISORDER [None]
  - INFLUENZA [None]
  - INJECTION SITE REACTION [None]
  - IRRITABILITY [None]
  - NAUSEA [None]
  - ORAL CANDIDIASIS [None]
  - PNEUMONIA [None]
  - PRURITUS [None]
  - PYREXIA [None]
  - SKIN REACTION [None]
  - WEIGHT DECREASED [None]
